FAERS Safety Report 7547297-7 (Version None)
Quarter: 2011Q2

REPORT INFORMATION
  Report Type: 
  Country: None (occurrence: None)
  Receive Date: 20110614
  Receipt Date: 20110603
  Transmission Date: 20111010
  Serious: Yes (Hospitalization)
  Sender: FDA-Public Use
  Company Number: JP-BAXTER-2011BH018569

PATIENT
  Sex: Male

DRUGS (1)
  1. EXTRANEAL [Suspect]
     Indication: RENAL FAILURE CHRONIC
     Route: 033

REACTIONS (2)
  - HYPONATRAEMIA [None]
  - C-REACTIVE PROTEIN INCREASED [None]
